FAERS Safety Report 25130995 (Version 2)
Quarter: 2025Q3

REPORT INFORMATION
  Report Type: Spontaneous
  Country: EU (occurrence: EU)
  Receive Date: 20250327
  Receipt Date: 20250718
  Transmission Date: 20251021
  Serious: Yes (Hospitalization, Other)
  Sender: VIIV
  Company Number: None

PATIENT
  Age: 33 Year

DRUGS (12)
  1. LAMIVUDINE [Suspect]
     Active Substance: LAMIVUDINE
     Indication: Product used for unknown indication
     Dates: start: 20021031, end: 20031027
  2. COMBIVIR [Suspect]
     Active Substance: LAMIVUDINE\ZIDOVUDINE
     Indication: Product used for unknown indication
     Route: 065
  3. AZT [Suspect]
     Active Substance: ZIDOVUDINE
     Indication: Product used for unknown indication
     Route: 065
     Dates: start: 20021031, end: 20031027
  4. KIVEXA [Suspect]
     Active Substance: ABACAVIR SULFATE\LAMIVUDINE
     Indication: Product used for unknown indication
     Route: 065
     Dates: start: 20080502, end: 20140330
  5. RALTEGRAVIR [Suspect]
     Active Substance: RALTEGRAVIR
     Indication: HIV infection
  6. EFAVIRENZ [Suspect]
     Active Substance: EFAVIRENZ
     Indication: Product used for unknown indication
     Dates: start: 19990114, end: 20021030
  7. ATAZANAVIR SULFATE [Suspect]
     Active Substance: ATAZANAVIR SULFATE
     Indication: Product used for unknown indication
     Route: 065
     Dates: start: 20140331, end: 20170214
  8. RITONAVIR [Suspect]
     Active Substance: RITONAVIR
     Indication: Product used for unknown indication
     Route: 065
     Dates: start: 20140331, end: 20170214
  9. NELFINAVIR MESYLATE [Suspect]
     Active Substance: NELFINAVIR MESYLATE
     Indication: Product used for unknown indication
     Dates: start: 20021031, end: 20031027
  10. STAVUDINE [Suspect]
     Active Substance: STAVUDINE
     Indication: Product used for unknown indication
     Route: 065
     Dates: start: 20031028, end: 20080501
  11. SAQUINAVIR MESYLATE [Suspect]
     Active Substance: SAQUINAVIR MESYLATE
     Indication: Product used for unknown indication
     Route: 065
     Dates: start: 20031028, end: 20080501
  12. KALETRA [Suspect]
     Active Substance: LOPINAVIR\RITONAVIR
     Indication: Product used for unknown indication
     Route: 065
     Dates: start: 20080205, end: 20140330

REACTIONS (11)
  - HIV-associated neurocognitive disorder [Unknown]
  - HIV infection CDC category C [Unknown]
  - Portal hypertension [Unknown]
  - Interstitial lung disease [Unknown]
  - Weight decreased [Unknown]
  - Paresis [Unknown]
  - Malabsorption [Unknown]
  - Anaemia [Unknown]
  - Oral candidiasis [Unknown]
  - Ill-defined disorder [Unknown]
  - Drug resistance [Unknown]
